FAERS Safety Report 9231150 (Version 3)
Quarter: 2013Q3

REPORT INFORMATION
  Report Type: Spontaneous
  Country: FR (occurrence: FR)
  Receive Date: 20130415
  Receipt Date: 20130909
  Transmission Date: 20140515
  Serious: Yes (Other)
  Sender: FDA-Public Use
  Company Number: FR-ROCHE-1212102

PATIENT
  Age: 85 Year
  Sex: Female

DRUGS (9)
  1. ROCEPHINE [Suspect]
     Indication: PRODUCT USED FOR UNKNOWN INDICATION
     Route: 042
     Dates: start: 20130219, end: 20130303
  2. CIFLOX [Suspect]
     Indication: PRODUCT USED FOR UNKNOWN INDICATION
     Route: 048
     Dates: start: 20130219, end: 20130307
  3. INEXIUM [Concomitant]
     Route: 048
  4. PARACETAMOL [Concomitant]
     Route: 048
  5. AMLOR [Concomitant]
     Route: 048
     Dates: start: 20130218
  6. CELLUVISC [Concomitant]
     Route: 047
     Dates: start: 20130215, end: 20130306
  7. LOVENOX [Concomitant]
     Route: 030
     Dates: start: 20130214
  8. DIFFU K [Concomitant]
     Route: 048
     Dates: start: 20130302
  9. CORTANCYL [Concomitant]
     Route: 048
     Dates: start: 20130304, end: 20130308

REACTIONS (1)
  - Mixed liver injury [Recovering/Resolving]
